FAERS Safety Report 15305625 (Version 2)
Quarter: 2018Q3

REPORT INFORMATION
  Report Type: Report from Study
  Country: None (occurrence: NL)
  Receive Date: 20180822
  Receipt Date: 20180927
  Transmission Date: 20181010
  Serious: Yes (Hospitalization)
  Sender: FDA-Public Use
  Company Number: NL-ABBVIE-18S-114-2456417-00

PATIENT
  Sex: Female

DRUGS (1)
  1. DUODOPA [Suspect]
     Active Substance: CARBIDOPA\LEVODOPA
     Indication: PARKINSON^S DISEASE
     Dosage: MORNING DOSE: 3.6 CONTINUOUS DOSE: 5.8 EXTRA DOSE: 2 NIGHT DOSE: 3 EXTRA DOSE NIGHT: 1.5
     Route: 050
     Dates: start: 20180115

REACTIONS (2)
  - Psychotic disorder [Unknown]
  - Knee operation [Unknown]

NARRATIVE: CASE EVENT DATE: 2018
